FAERS Safety Report 8037686-9 (Version None)
Quarter: 2012Q1

REPORT INFORMATION
  Report Type: 
  Country: None (occurrence: None)
  Receive Date: 20120111
  Receipt Date: 20120109
  Transmission Date: 20120608
  Serious: No
  Sender: FDA-Public Use
  Company Number: US-BAYER-2012-003062

PATIENT
  Sex: Female

DRUGS (1)
  1. BILTRICIDE [Suspect]
     Indication: CESTODE INFECTION
     Dosage: 600 MG, UNK
     Route: 048
     Dates: start: 20120108

REACTIONS (1)
  - DRUG INEFFECTIVE [None]
